FAERS Safety Report 9394952 (Version 1)
Quarter: 2013Q3

REPORT INFORMATION
  Report Type: Spontaneous
  Country: US (occurrence: US)
  Receive Date: 20130711
  Receipt Date: 20130711
  Transmission Date: 20140515
  Serious: No
  Sender: FDA-Public Use
  Company Number: US-COVIDIEN/TYCO HEALTHCARE/MALLINCKRODT-T201301164

PATIENT
  Age: 66 Year
  Sex: Female

DRUGS (5)
  1. MORPHINE EXTENDED-RELEASE [Suspect]
     Indication: PAIN
     Dosage: 4 TABS PER DAY
     Route: 048
     Dates: start: 201212
  2. ROXICODONE [Suspect]
     Indication: PAIN
     Dosage: 4-6 TABLETS A DAY
     Route: 048
     Dates: end: 2012
  3. MORPHINE [Concomitant]
     Indication: BREAKTHROUGH PAIN
     Dosage: 30 MG, UP TO 4 TABS PER DAY PRN
     Route: 048
     Dates: start: 201212
  4. CYMBALTA [Concomitant]
     Dosage: UNK
  5. VALIUM                             /00017001/ [Concomitant]
     Dosage: 1-3 PER DAY PRN

REACTIONS (5)
  - Tooth disorder [Not Recovered/Not Resolved]
  - Urinary retention [Not Recovered/Not Resolved]
  - Decreased appetite [Not Recovered/Not Resolved]
  - Fatigue [Not Recovered/Not Resolved]
  - Constipation [Not Recovered/Not Resolved]
